FAERS Safety Report 8545404-0 (Version None)
Quarter: 2012Q3

REPORT INFORMATION
  Report Type: 
  Country: None (occurrence: None)
  Receive Date: 20120727
  Receipt Date: 20111103
  Transmission Date: 20120928
  Serious: No
  Sender: FDA-Public Use
  Company Number: US-ASTRAZENECA-2011SE66518

PATIENT
  Age: 34 Year
  Sex: Female
  Weight: 81.6 kg

DRUGS (5)
  1. ELAVIL [Concomitant]
     Indication: MOOD SWINGS
  2. LERICA [Concomitant]
  3. ATENOLOL [Concomitant]
     Indication: CARDIAC DISORDER
  4. SEROQUEL [Suspect]
     Indication: BIPOLAR DISORDER
     Route: 048
     Dates: start: 19980101
  5. ZANTAX [Concomitant]
     Indication: ANXIOLYTIC THERAPY

REACTIONS (3)
  - CRYING [None]
  - ANGER [None]
  - DRUG DOSE OMISSION [None]
